FAERS Safety Report 5636818-7 (Version None)
Quarter: 2008Q1

REPORT INFORMATION
  Report Type: 
  Country: None (occurrence: None)
  Receive Date: 20080220
  Receipt Date: 20080220
  Transmission Date: 20080703
  Serious: Yes (Death)
  Sender: FDA-Public Use
  Company Number: None

PATIENT
  Age: 22 Year
  Sex: Male
  Weight: 74.8435 kg

DRUGS (4)
  1. CHANTIX [Suspect]
     Indication: SMOKING CESSATION THERAPY
     Dosage: 1 TABLET DAILY PO  INTERMITTENT USE FEB/DEC
     Route: 048
  2. LOVENOX [Concomitant]
  3. TRAMADOL HCL [Concomitant]
  4. CLINDAMYCIN HCL [Concomitant]

REACTIONS (5)
  - ABNORMAL BEHAVIOUR [None]
  - COMPLETED SUICIDE [None]
  - DEPRESSION [None]
  - MOOD SWINGS [None]
  - NIGHTMARE [None]
